FAERS Safety Report 5004095-6 (Version None)
Quarter: 2006Q2

REPORT INFORMATION
  Report Type: 
  Country: None (occurrence: None)
  Receive Date: 20060511
  Receipt Date: 20060503
  Transmission Date: 20061013
  Serious: Yes (Hospitalization, Other)
  Sender: FDA-Public Use
  Company Number: 2006060003

PATIENT
  Age: 80 Year
  Sex: Female

DRUGS (3)
  1. ZYRTEC [Suspect]
     Indication: NASAL CONGESTION
     Dosage: 10 MG (10 MG, 1 IN 1 D), ORAL
     Route: 048
     Dates: start: 20060430, end: 20060430
  2. XANAX [Concomitant]
  3. PROPAFENONE HCL [Concomitant]

REACTIONS (3)
  - BLOOD PRESSURE SYSTOLIC INCREASED [None]
  - DIZZINESS [None]
  - NODAL ARRHYTHMIA [None]
